FAERS Safety Report 5510876-2 (Version None)
Quarter: 2007Q4

REPORT INFORMATION
  Report Type: 
  Country: None (occurrence: None)
  Receive Date: 20071107
  Receipt Date: 20071029
  Transmission Date: 20080405
  Serious: Yes (Hospitalization)
  Sender: FDA-Public Use
  Company Number: 2007BI018603

PATIENT
  Sex: Female
  Weight: 57.1532 kg

DRUGS (2)
  1. NATALIZUMAB [Suspect]
     Indication: MULTIPLE SCLEROSIS
     Dosage: 300 MG; QM; IV
     Route: 042
     Dates: start: 20070716
  2. AVONEX [Concomitant]

REACTIONS (8)
  - BLOOD DISORDER [None]
  - DRUG LEVEL INCREASED [None]
  - INFECTION [None]
  - INTERNATIONAL NORMALISED RATIO INCREASED [None]
  - METHICILLIN-RESISTANT STAPHYLOCOCCAL AUREUS TEST POSITIVE [None]
  - MULTIPLE SCLEROSIS RELAPSE [None]
  - POISONING [None]
  - PROTHROMBIN TIME PROLONGED [None]
